FAERS Safety Report 6137229-0 (Version None)
Quarter: 2009Q1

REPORT INFORMATION
  Report Type: 
  Country: None (occurrence: None)
  Receive Date: 20090330
  Receipt Date: 20090319
  Transmission Date: 20090719
  Serious: Yes (Other)
  Sender: FDA-Public Use
  Company Number: US-JNJCH-2009000966

PATIENT
  Age: 63 Year
  Sex: Female
  Weight: 70.3 kg

DRUGS (1)
  1. ROGAINE [Suspect]
     Indication: ALOPECIA
     Dosage: TEXT:AS DIRECTED TWICE A DAY
     Route: 061
     Dates: start: 20080512, end: 20090105

REACTIONS (9)
  - APPLICATION SITE IRRITATION [None]
  - DRY SKIN [None]
  - EAR DISORDER [None]
  - HAIR GROWTH ABNORMAL [None]
  - HYPERTRICHOSIS [None]
  - INFECTION [None]
  - RASH [None]
  - SCAR [None]
  - SKIN DISORDER [None]
